FAERS Safety Report 4590104-5 (Version None)
Quarter: 2005Q1

REPORT INFORMATION
  Report Type: 
  Country: None (occurrence: None)
  Receive Date: 20050217
  Receipt Date: 20050208
  Transmission Date: 20050727
  Serious: Yes (Other)
  Sender: FDA-Public Use
  Company Number: 200510056BCA

PATIENT
  Age: 41 Year
  Sex: Female

DRUGS (4)
  1. AVELOX [Suspect]
     Dosage: 400 MG, TOTAL DAILY, INTRAVENOUS
     Route: 042
     Dates: start: 20050205
  2. VENTO [Concomitant]
  3. ATROVENT [Concomitant]
  4. MAXERAN [Concomitant]

REACTIONS (1)
  - SINUS BRADYCARDIA [None]
